FAERS Safety Report 10071985 (Version 1)
Quarter: 2014Q1

REPORT INFORMATION
  Report Type: Spontaneous
  Country: US (occurrence: None)
  Receive Date: 20140314
  Receipt Date: 20140314
  Transmission Date: 20141002
  Serious: Yes (Disabling)
  Sender: FDA-Public Use
  Company Number: 2013SA079057

PATIENT
  Age: 58 Year
  Sex: Female

DRUGS (1)
  1. AUBAGIO [Suspect]
     Indication: MULTIPLE SCLEROSIS
     Route: 048
     Dates: start: 20121101, end: 201307

REACTIONS (8)
  - Muscle spasms [None]
  - Asthenia [None]
  - Muscular weakness [None]
  - Gait disturbance [None]
  - Balance disorder [None]
  - Muscle disorder [None]
  - Arthralgia [None]
  - Musculoskeletal disorder [None]
